FAERS Safety Report 4848507-7 (Version None)
Quarter: 2005Q4

REPORT INFORMATION
  Report Type: 
  Country: None (occurrence: None)
  Receive Date: 20051208
  Receipt Date: 20051129
  Transmission Date: 20060501
  Serious: Yes (Other)
  Sender: FDA-Public Use
  Company Number: US-JNJFOC-20051200797

PATIENT
  Age: 44 Year
  Sex: Male
  Weight: 102.06 kg

DRUGS (1)
  1. REMICADE [Suspect]
     Indication: CROHN'S DISEASE
     Route: 042

REACTIONS (2)
  - GALLBLADDER DISORDER [None]
  - GALLBLADDER OPERATION [None]
